FAERS Safety Report 7755711-7 (Version None)
Quarter: 2011Q3

REPORT INFORMATION
  Report Type: 
  Country: None (occurrence: None)
  Receive Date: 20110916
  Receipt Date: 20110906
  Transmission Date: 20111222
  Serious: Yes (Hospitalization, Other)
  Sender: FDA-Public Use
  Company Number: PHFR2011IE05047

PATIENT
  Sex: Male

DRUGS (2)
  1. OPIAT [Suspect]
     Route: 065
  2. CLOZAPINE [Suspect]
     Indication: SCHIZOPHRENIA
     Route: 048
     Dates: start: 19931201

REACTIONS (10)
  - BACK PAIN [None]
  - RENAL CANCER [None]
  - DEHYDRATION [None]
  - METASTASES TO KIDNEY [None]
  - NAUSEA [None]
  - MALIGNANT NEOPLASM OF SPINAL CORD [None]
  - CONSTIPATION [None]
  - METASTASES TO CENTRAL NERVOUS SYSTEM [None]
  - METASTASES TO BONE [None]
  - ASTHENIA [None]
